FAERS Safety Report 6202949-6 (Version None)
Quarter: 2009Q2

REPORT INFORMATION
  Report Type: 
  Country: None (occurrence: None)
  Receive Date: 20090520
  Receipt Date: 20090512
  Transmission Date: 20091009
  Serious: Yes (Disabling)
  Sender: FDA-Public Use
  Company Number: OSCN-NO-0905S-0244

PATIENT
  Age: 50 Year
  Sex: Female
  Weight: 50 kg

DRUGS (1)
  1. OMNISCAN [Suspect]
     Indication: RENAL TRANSPLANT
     Dosage: 22 ML, SINGLE DOSE, I.V.
     Route: 042
     Dates: start: 20041025, end: 20041025

REACTIONS (1)
  - NEPHROGENIC SYSTEMIC FIBROSIS [None]
